FAERS Safety Report 23563336 (Version 3)
Quarter: 2024Q3

REPORT INFORMATION
  Report Type: Spontaneous
  Country: US (occurrence: US)
  Receive Date: 20240226
  Receipt Date: 20240802
  Transmission Date: 20241016
  Serious: No
  Sender: SANOFI AVENTIS
  Company Number: US-SA-SAC20240221001181

PATIENT
  Age: 72 Year
  Sex: Male

DRUGS (1)
  1. DUPIXENT [Suspect]
     Active Substance: DUPILUMAB
     Indication: Asthma
     Dosage: 300 MG, QOW
     Route: 058

REACTIONS (7)
  - Eye pain [Unknown]
  - Rosacea [Unknown]
  - Flushing [Recovered/Resolved]
  - Musculoskeletal discomfort [Unknown]
  - Erythema [Recovered/Resolved]
  - Dyspnoea [Unknown]
  - Drug ineffective [Unknown]
